FAERS Safety Report 5707900-0 (Version None)
Quarter: 2008Q2

REPORT INFORMATION
  Report Type: 
  Country: None (occurrence: None)
  Receive Date: 20080417
  Receipt Date: 20080414
  Transmission Date: 20081010
  Serious: Yes (Disabling)
  Sender: FDA-Public Use
  Company Number: NO-DENTSPLY-E2B_00000006

PATIENT
  Sex: Male

DRUGS (1)
  1. XYLOCAINE [Suspect]
     Dates: start: 20070501

REACTIONS (8)
  - ANAESTHETIC COMPLICATION [None]
  - ARTHRALGIA [None]
  - HEADACHE [None]
  - HYPERSENSITIVITY [None]
  - JOINT SWELLING [None]
  - PALPITATIONS [None]
  - RENAL PAIN [None]
  - VISUAL DISTURBANCE [None]
